FAERS Safety Report 25470839 (Version 2)
Quarter: 2025Q2

REPORT INFORMATION
  Report Type: Report from Study
  Country: AU (occurrence: AU)
  Receive Date: 20250624
  Receipt Date: 20250627
  Transmission Date: 20250716
  Serious: No
  Sender: NOVARTIS
  Company Number: AU-002147023-NVSC2025AU099629

PATIENT
  Sex: Female

DRUGS (1)
  1. COSENTYX [Suspect]
     Active Substance: SECUKINUMAB
     Indication: Ankylosing spondylitis
     Dosage: UNK, QMO
     Route: 058
     Dates: start: 20241015

REACTIONS (1)
  - Eye irritation [Recovered/Resolved]
